FAERS Safety Report 9189367 (Version 1)
Quarter: 2013Q1

REPORT INFORMATION
  Report Type: Spontaneous
  Country: US (occurrence: None)
  Receive Date: 20130322
  Receipt Date: 20130322
  Transmission Date: 20140127
  Serious: Yes (Life-Threatening, Hospitalization)
  Sender: FDA-Public Use
  Company Number: None

PATIENT
  Age: 61 Year
  Sex: Female
  Weight: 72.58 kg

DRUGS (1)
  1. OCTAGAM [Suspect]
     Indication: IMMUNODEFICIENCY COMMON VARIABLE
     Dosage: EVERY 4 WEEKS
     Route: 041
     Dates: start: 20121019, end: 20130111

REACTIONS (2)
  - Drug hypersensitivity [None]
  - Pulmonary embolism [None]
